FAERS Safety Report 6575497-1 (Version None)
Quarter: 2010Q1

REPORT INFORMATION
  Report Type: 
  Country: None (occurrence: None)
  Receive Date: 20100209
  Receipt Date: 20100202
  Transmission Date: 20100710
  Serious: Yes (Other)
  Sender: FDA-Public Use
  Company Number: US-JNJFOC-20100202046

PATIENT
  Sex: Male
  Weight: 31.75 kg

DRUGS (2)
  1. CONCERTA [Suspect]
     Indication: ATTENTION DEFICIT/HYPERACTIVITY DISORDER
     Route: 065
  2. CONCERTA [Suspect]
     Route: 065

REACTIONS (2)
  - DISTURBANCE IN ATTENTION [None]
  - RESTLESSNESS [None]
